FAERS Safety Report 23730976 (Version 2)
Quarter: 2024Q2

REPORT INFORMATION
  Report Type: Report from Study
  Country: BR (occurrence: BR)
  Receive Date: 20240411
  Receipt Date: 20240520
  Transmission Date: 20240716
  Serious: Yes (Hospitalization)
  Sender: FDA-Public Use
  Company Number: BR-002147023-NVSC2023BR252069

PATIENT
  Sex: Male

DRUGS (2)
  1. COSENTYX [Suspect]
     Active Substance: SECUKINUMAB
     Indication: Product used for unknown indication
     Dosage: UNK, EVERY 30 DAYS
     Route: 065
     Dates: start: 202302
  2. COSENTYX [Suspect]
     Active Substance: SECUKINUMAB
     Dosage: UNK, EVERY 15 DAYS
     Route: 065

REACTIONS (12)
  - Arthralgia [Unknown]
  - Product prescribing error [Unknown]
  - Arthritis [Unknown]
  - Musculoskeletal stiffness [Unknown]
  - Joint swelling [Unknown]
  - Peripheral swelling [Unknown]
  - Bursitis [Unknown]
  - Inflammation [Unknown]
  - Back pain [Unknown]
  - Neck pain [Unknown]
  - Pain in extremity [Unknown]
  - Drug ineffective [Unknown]
